FAERS Safety Report 7125625-4 (Version None)
Quarter: 2010Q4

REPORT INFORMATION
  Report Type: 
  Country: None (occurrence: None)
  Receive Date: 20101129
  Receipt Date: 20101115
  Transmission Date: 20110411
  Serious: Yes (Hospitalization)
  Sender: FDA-Public Use
  Company Number: FR-ASTRAZENECA-2010SE54688

PATIENT
  Age: 23047 Day
  Sex: Male

DRUGS (4)
  1. CRESTOR [Interacting]
     Indication: HYPERCHOLESTEROLAEMIA
     Route: 048
  2. PREVISCAN [Interacting]
     Indication: ATRIAL FIBRILLATION
     Dosage: ADJUSTED TO INR
     Route: 048
     Dates: start: 20100930, end: 20101011
  3. PLAVIX [Suspect]
     Indication: PERIPHERAL ARTERIAL OCCLUSIVE DISEASE
     Route: 048
     Dates: end: 20101011
  4. APROVEL [Concomitant]
     Route: 048

REACTIONS (6)
  - BLOOD PRESSURE DECREASED [None]
  - DRUG INTERACTION [None]
  - DUODENAL ULCER HAEMORRHAGE [None]
  - HAEMOGLOBIN DECREASED [None]
  - INTERNATIONAL NORMALISED RATIO INCREASED [None]
  - LOSS OF CONSCIOUSNESS [None]
